FAERS Safety Report 22228094 (Version 1)
Quarter: 2023Q2

REPORT INFORMATION
  Report Type: Report from Study
  Country: AU (occurrence: AU)
  Receive Date: 20230419
  Receipt Date: 20230419
  Transmission Date: 20230721
  Serious: Yes (Life-Threatening, Other)
  Sender: FDA-Public Use
  Company Number: AU-PFIZER INC-202300161662

PATIENT
  Age: 4 Year

DRUGS (1)
  1. NALOXONE HCL [Suspect]
     Active Substance: NALOXONE HYDROCHLORIDE
     Indication: Toxicity to various agents
     Dosage: 400 MCG
     Route: 042

REACTIONS (1)
  - Drug ineffective [Unknown]
